FAERS Safety Report 9149420 (Version 1)
Quarter: 2013Q1

REPORT INFORMATION
  Report Type: Spontaneous
  Country: US (occurrence: None)
  Receive Date: 20130228
  Receipt Date: 20130228
  Transmission Date: 20140127
  Serious: Yes (Life-Threatening)
  Sender: FDA-Public Use
  Company Number: None

PATIENT
  Age: 81 Year
  Sex: Male
  Weight: 120.6 kg

DRUGS (2)
  1. ENOXAPARIN [Suspect]
     Indication: DEEP VEIN THROMBOSIS
     Route: 058
     Dates: start: 20130219, end: 20130222
  2. WARFARIN [Suspect]
     Indication: DEEP VEIN THROMBOSIS
     Route: 048
     Dates: start: 20130219, end: 20130222

REACTIONS (7)
  - Pyrexia [None]
  - International normalised ratio abnormal [None]
  - Hypotension [None]
  - Delirium [None]
  - Haematuria [None]
  - Subdural haematoma [None]
  - Refusal of treatment by relative [None]
